FAERS Safety Report 4368108-7 (Version None)
Quarter: 2004Q2

REPORT INFORMATION
  Report Type: 
  Country: None (occurrence: None)
  Receive Date: 20040602
  Receipt Date: 20040407
  Transmission Date: 20050107
  Serious: Yes (Hospitalization, Other)
  Sender: FDA-Public Use
  Company Number: DK-BRISTOL-MYERS SQUIBB COMPANY-12553301

PATIENT
  Age: 51 Year
  Sex: Male
  Weight: 86 kg

DRUGS (6)
  1. IFOSFAMIDE [Suspect]
     Indication: SARCOMA
     Route: 042
     Dates: start: 20040127, end: 20040127
  2. CAELYX [Suspect]
     Indication: SARCOMA
     Route: 042
     Dates: start: 20040127, end: 20040127
  3. PREDNISOLONE [Concomitant]
     Dosage: 100-50 MG X 3 DAYS
  4. ONDANSETRON [Concomitant]
     Dosage: + 8 MG
  5. METOPIMAZINE [Concomitant]
     Dosage: FOR 4 DAYS
  6. LORAZEPAM [Concomitant]

REACTIONS (3)
  - NEPHROPATHY TOXIC [None]
  - SEPSIS [None]
  - TOXIC INDUCED ENCEPHALOPATHY [None]
